FAERS Safety Report 8334695 (Version 2)
Quarter: 2013Q1

REPORT INFORMATION
  Report Type: Spontaneous
  Country: GB (occurrence: GB)
  Receive Date: 20120112
  Receipt Date: 20130114
  Transmission Date: 20140127
  Serious: Yes (Death)
  Sender: FDA-Public Use
  Company Number: PHFR2011GB007389

PATIENT
  Age: 94 Year
  Sex: 0

DRUGS (1)
  1. TEGRETOL [Suspect]
     Dosage: 100 MG, UNK

REACTIONS (2)
  - Death [Fatal]
  - Dysphagia [Unknown]
